FAERS Safety Report 19837426 (Version 3)
Quarter: 2021Q4

REPORT INFORMATION
  Report Type: Spontaneous
  Country: PL (occurrence: PL)
  Receive Date: 20210916
  Receipt Date: 20211004
  Transmission Date: 20220303
  Serious: Yes (Hospitalization, Other)
  Sender: FDA-Public Use
  Company Number: PL-UCBSA-2021042016

PATIENT
  Age: 62 Year
  Sex: Female

DRUGS (5)
  1. LACOSAMIDE [Interacting]
     Active Substance: LACOSAMIDE
     Indication: Epilepsy
     Dosage: 200 MILLIGRAM
     Dates: start: 2016
  2. LAMOTRIGINE [Interacting]
     Active Substance: LAMOTRIGINE
     Indication: Epilepsy
     Dosage: 250 MILLIGRAM
     Dates: start: 2017
  3. PRIDINOL [Interacting]
     Active Substance: PRIDINOL
     Indication: Epilepsy
     Dates: start: 2020
  4. VALPROIC ACID [Interacting]
     Active Substance: VALPROIC ACID
     Indication: Epilepsy
     Dosage: 1.5 GRAM
  5. VALPROIC ACID [Interacting]
     Active Substance: VALPROIC ACID
     Dosage: 1 GRAM, ONCE DAILY (QD)

REACTIONS (21)
  - Drug interaction [Unknown]
  - Tremor [Recovering/Resolving]
  - Cerebellar syndrome [Recovering/Resolving]
  - Neurological symptom [Recovering/Resolving]
  - Loss of personal independence in daily activities [Recovering/Resolving]
  - Cognitive disorder [Recovering/Resolving]
  - Intention tremor [Recovering/Resolving]
  - Balance disorder [Unknown]
  - Head titubation [Recovering/Resolving]
  - Dysmetria [Unknown]
  - Resting tremor [Recovering/Resolving]
  - Cerebral atrophy [Unknown]
  - Therapeutic product effect incomplete [Unknown]
  - Movement disorder [Unknown]
  - Dissociative disorder [Unknown]
  - White matter lesion [Unknown]
  - Cerebral arteriosclerosis [Unknown]
  - Nystagmus [Recovering/Resolving]
  - Limb discomfort [Recovering/Resolving]
  - Gait disturbance [Recovered/Resolved]
  - Arteriosclerosis [Recovering/Resolving]

NARRATIVE: CASE EVENT DATE: 20200701
